FAERS Safety Report 5267729-7 (Version None)
Quarter: 2007Q1

REPORT INFORMATION
  Report Type: 
  Country: None (occurrence: None)
  Receive Date: 20070316
  Receipt Date: 20070307
  Transmission Date: 20070707
  Serious: Yes (Other)
  Sender: FDA-Public Use
  Company Number: JP-PFIZER INC-2007010091

PATIENT
  Age: 51 Year
  Sex: Male

DRUGS (8)
  1. LIPITOR [Suspect]
     Indication: HYPERLIPIDAEMIA
     Dosage: DAILY DOSE:10MG
     Route: 048
  2. GLIMICRON [Concomitant]
     Indication: DIABETES MELLITUS
     Route: 048
  3. ACTOS [Concomitant]
     Indication: DIABETES MELLITUS
     Route: 048
  4. URALYT [Concomitant]
     Route: 048
  5. GLUCOBAY [Concomitant]
     Route: 048
  6. URINORM [Concomitant]
     Route: 048
  7. LIPIDIL [Concomitant]
     Route: 048
  8. ANHYDROUS MITIGLINIDE CALCIUM [Concomitant]
     Route: 048

REACTIONS (1)
  - GLYCOSYLATED HAEMOGLOBIN INCREASED [None]
